FAERS Safety Report 23069217 (Version 1)
Quarter: 2023Q4

REPORT INFORMATION
  Report Type: Spontaneous
  Country: BE (occurrence: BE)
  Receive Date: 20231016
  Receipt Date: 20231016
  Transmission Date: 20240109
  Serious: Yes (Other)
  Sender: FDA-Public Use
  Company Number: None

PATIENT
  Sex: Male

DRUGS (4)
  1. LYRICA [Suspect]
     Active Substance: PREGABALIN
     Indication: Product used for unknown indication
     Dosage: 35 DOSAGE FORM, QD (5300 TABS, 35 TABS/DAY)
     Route: 065
  2. LYRICA [Suspect]
     Active Substance: PREGABALIN
     Dosage: 2250 DF, QD(5300 TABS, 2250 TABS/DAY)
     Route: 065
  3. TRAMADOL [Suspect]
     Active Substance: TRAMADOL\TRAMADOL HYDROCHLORIDE
     Indication: Product used for unknown indication
     Dosage: 18 DF, QD (2800 TABLETS, 18 TABS/DAY)
     Route: 065
  4. RIVOTRIL [Suspect]
     Active Substance: CLONAZEPAM
     Indication: Product used for unknown indication
     Dosage: 15 DOSAGE FORM, QD (15 TABS PER DAY)
     Route: 065

REACTIONS (3)
  - Drug abuse [Unknown]
  - Pharmaceutical nomadism [Unknown]
  - Product prescribing issue [Unknown]
